FAERS Safety Report 6116802-X (Version None)
Quarter: 2009Q1

REPORT INFORMATION
  Report Type: 
  Country: None (occurrence: None)
  Receive Date: 20090314
  Receipt Date: 20081226
  Transmission Date: 20090719
  Serious: No
  Sender: FDA-Public Use
  Company Number: US-ABBOTT-08P-163-0494980-00

PATIENT
  Sex: Female

DRUGS (1)
  1. HUMIRA [Suspect]
     Indication: RHEUMATOID ARTHRITIS
     Dates: start: 20051101

REACTIONS (5)
  - CONTUSION [None]
  - HERPES ZOSTER [None]
  - IMMUNODEFICIENCY [None]
  - RHEUMATOID ARTHRITIS [None]
  - SINUSITIS [None]
